FAERS Safety Report 6745532-6 (Version None)
Quarter: 2010Q2

REPORT INFORMATION
  Report Type: 
  Country: None (occurrence: None)
  Receive Date: 20100528
  Receipt Date: 20100524
  Transmission Date: 20101027
  Serious: Yes (Death, Congenital Anomaly)
  Sender: FDA-Public Use
  Company Number: CN-JNJFOC-20100509486

PATIENT

DRUGS (2)
  1. DAKTARIN CREAM [Suspect]
     Route: 064
  2. DAKTARIN CREAM [Suspect]
     Indication: DRUG EXPOSURE DURING PREGNANCY
     Route: 064

REACTIONS (1)
  - CONGENITAL ANOMALY [None]
